FAERS Safety Report 7189969-2 (Version None)
Quarter: 2010Q4

REPORT INFORMATION
  Report Type: 
  Country: None (occurrence: None)
  Receive Date: 20101223
  Receipt Date: 20101214
  Transmission Date: 20110411
  Serious: Yes (Hospitalization)
  Sender: FDA-Public Use
  Company Number: BE-JNJFOC-20101204448

PATIENT
  Sex: Female
  Weight: 70 kg

DRUGS (12)
  1. NIZORAL [Suspect]
     Indication: PRODUCT USED FOR UNKNOWN INDICATION
     Route: 065
  2. BELSAR (OLMESARTAN MEDOXOMIL) [Concomitant]
     Route: 048
  3. DOCTRAZODONE [Concomitant]
     Route: 065
  4. PAROXETINE HCL [Concomitant]
     Route: 065
  5. MODURETIC 5-50 [Concomitant]
     Route: 065
  6. RIVOTRIL [Concomitant]
     Route: 065
  7. ZOCOR [Concomitant]
     Route: 065
  8. MAREVAN [Concomitant]
     Route: 065
  9. FRAXODI [Concomitant]
     Route: 058
  10. PNEUMO 23 [Concomitant]
     Route: 065
  11. UNKNOWN MEDICATION [Concomitant]
     Route: 065
  12. ISOPRINOSINE [Concomitant]
     Route: 048

REACTIONS (3)
  - FATIGUE [None]
  - PULMONARY EMBOLISM [None]
  - RESPIRATORY DISORDER [None]
